FAERS Safety Report 11031518 (Version 2)
Quarter: 2015Q2

REPORT INFORMATION
  Report Type: Spontaneous
  Country: BE (occurrence: None)
  Receive Date: 20150413
  Receipt Date: 20150427
  Transmission Date: 20150821
  Serious: Yes (Hospitalization, Other)
  Sender: FDA-Public Use
  Company Number: ADR-2015-00693

PATIENT
  Age: 42 Year
  Sex: Female
  Weight: 44.91 kg

DRUGS (1)
  1. LIORESAL [Suspect]
     Active Substance: BACLOFEN
     Indication: SPASTIC DIPLEGIA

REACTIONS (9)
  - Accidental overdose [None]
  - Confusional state [None]
  - Paradoxical drug reaction [None]
  - Hyperhidrosis [None]
  - Nausea [None]
  - Hypotonia [None]
  - Device infusion issue [None]
  - Tremor [None]
  - Fall [None]

NARRATIVE: CASE EVENT DATE: 20150319
